FAERS Safety Report 7985238-9 (Version None)
Quarter: 2011Q4

REPORT INFORMATION
  Report Type: 
  Country: None (occurrence: None)
  Receive Date: 20111216
  Receipt Date: 20111108
  Transmission Date: 20120403
  Serious: No
  Sender: FDA-Public Use
  Company Number: PHHY2011JP29828

PATIENT
  Sex: Male
  Weight: 95 kg

DRUGS (5)
  1. DIOVAN HCT [Interacting]
     Indication: HYPERTENSION
     Dosage: 1 DF, UNK
     Route: 048
     Dates: start: 20101119
  2. AMLODIPINE [Concomitant]
     Indication: HYPERTENSION
     Dosage: 10 MG
     Route: 048
     Dates: start: 20090828
  3. ALLOPURINOL [Interacting]
     Indication: GOUT
     Dosage: 100 MG
     Route: 048
     Dates: start: 20041017
  4. ALOCHINON [Interacting]
     Indication: HYPERTENSION
     Dosage: 10 MG
     Route: 048
     Dates: start: 20041228
  5. RASILEZ [Suspect]
     Indication: HYPERTENSION
     Route: 048
     Dates: start: 20110314, end: 20110404

REACTIONS (2)
  - PHOTOSENSITIVITY REACTION [None]
  - ECZEMA [None]
